FAERS Safety Report 6263690-7 (Version None)
Quarter: 2009Q3

REPORT INFORMATION
  Report Type: 
  Country: None (occurrence: None)
  Receive Date: 20090710
  Receipt Date: 20090706
  Transmission Date: 20100115
  Serious: Yes (Other)
  Sender: FDA-Public Use
  Company Number: BR-PFIZER INC-2009237075

PATIENT
  Age: 84 Year

DRUGS (7)
  1. LIPITOR [Suspect]
     Indication: BLOOD CHOLESTEROL INCREASED
     Dosage: UNK
     Route: 048
  2. LASIX [Concomitant]
     Dosage: UNK
  3. FOLACIN [Concomitant]
     Dosage: UNK
  4. ACETYLSALICYLIC ACID [Concomitant]
     Dosage: UNK
  5. ERYTHROPOIETIN [Concomitant]
     Dosage: UNK
  6. CITONEURON [Concomitant]
     Dosage: UNK
  7. CYANOCOBALAMIN/PYRIDOXINE HYDROCHLORIDE/THIAMINE NITRATE [Concomitant]
     Dosage: UNK

REACTIONS (4)
  - BLOOD URIC ACID INCREASED [None]
  - CARDIOVASCULAR DISORDER [None]
  - CAROTID ARTERY OCCLUSION [None]
  - MYALGIA [None]
